FAERS Safety Report 7635868-9 (Version None)
Quarter: 2011Q3

REPORT INFORMATION
  Report Type: 
  Country: None (occurrence: None)
  Receive Date: 20110726
  Receipt Date: 20110706
  Transmission Date: 20111222
  Serious: No
  Sender: FDA-Public Use
  Company Number: US-B.I. PHARMACEUTICALS,INC./RIDGEFIELD-2011-BP-17137BP

PATIENT
  Age: 79 Year
  Sex: Male

DRUGS (11)
  1. LIPITOR [Concomitant]
     Indication: BLOOD CHOLESTEROL INCREASED
  2. ASPIRIN [Concomitant]
     Indication: CARDIAC DISORDER
  3. ASPIRIN [Concomitant]
     Indication: PROPHYLAXIS
  4. DOXYCYCLINE [Concomitant]
     Indication: EMPHYSEMA
  5. REQUIP [Concomitant]
     Indication: RESTLESS LEGS SYNDROME
     Dates: start: 20070101
  6. SPIRIVA [Suspect]
     Indication: EMPHYSEMA
     Dosage: 18 MCG
     Route: 055
  7. ZOLOFT [Concomitant]
     Dates: start: 19960101
  8. QUALAQUIN [Concomitant]
     Indication: MUSCLE SPASMS
     Dates: start: 20090101
  9. AMOXICILLIN [Concomitant]
     Indication: EMPHYSEMA
  10. ATENOLOL [Concomitant]
     Indication: BLOOD PRESSURE INCREASED
  11. SULFAMETHOXAZOLE [Concomitant]
     Indication: EMPHYSEMA

REACTIONS (7)
  - MASS [None]
  - TESTICULAR DISORDER [None]
  - BRONCHITIS [None]
  - TESTICULAR SWELLING [None]
  - PRURITUS [None]
  - SKIN MASS [None]
  - LIP SWELLING [None]
